FAERS Safety Report 26198825 (Version 1)
Quarter: 2025Q4

REPORT INFORMATION
  Report Type: Spontaneous
  Country: CN (occurrence: CN)
  Receive Date: 20251225
  Receipt Date: 20251225
  Transmission Date: 20260118
  Serious: Yes (Death)
  Sender: ROCHE
  Company Number: CN-ROCHE-10000467025

PATIENT

DRUGS (2)
  1. PERTUZUMAB\TRASTUZUMAB [Suspect]
     Active Substance: PERTUZUMAB\TRASTUZUMAB
     Indication: Triple positive breast cancer
  2. PALBOCICLIB [Suspect]
     Active Substance: PALBOCICLIB
     Indication: Triple positive breast cancer

REACTIONS (2)
  - Disease progression [Unknown]
  - Death [Fatal]
